FAERS Safety Report 10543398 (Version 1)
Quarter: 2014Q4

REPORT INFORMATION
  Report Type: Spontaneous
  Country: US (occurrence: None)
  Receive Date: 20141010
  Receipt Date: 20141010
  Transmission Date: 20150529
  Serious: No
  Sender: FDA-Public Use
  Company Number: 163-POMAL-14013851

PATIENT
  Age: 80 Year
  Sex: Female
  Weight: 45.4 kg

DRUGS (8)
  1. VITAMIN D (ERGOCALCIFEROL) [Concomitant]
     Active Substance: ERGOCALCIFEROL
  2. PEPCID [Concomitant]
     Active Substance: FAMOTIDINE
  3. PREDNISONE. [Concomitant]
     Active Substance: PREDNISONE
  4. FLUOROURACIL. [Concomitant]
     Active Substance: FLUOROURACIL
  5. URSODIOL (URSODEOXYCHOLIC ACID) [Concomitant]
  6. TYLENOL [Concomitant]
     Active Substance: ACETAMINOPHEN
  7. POMALYST [Suspect]
     Active Substance: POMALIDOMIDE
     Indication: PLASMA CELL MYELOMA
     Dosage: 4 MG, 21 IN 28 D, PO
     Route: 048
     Dates: start: 20131227
  8. CREON (PANCRELIPASE) [Concomitant]

REACTIONS (4)
  - Pruritus [None]
  - Erythema [None]
  - Diarrhoea [None]
  - Back pain [None]

NARRATIVE: CASE EVENT DATE: 20140124
